FAERS Safety Report 4338684-9 (Version None)
Quarter: 2004Q2

REPORT INFORMATION
  Report Type: 
  Country: None (occurrence: None)
  Receive Date: 20040409
  Receipt Date: 20040402
  Transmission Date: 20050107
  Serious: Yes (Hospitalization)
  Sender: FDA-Public Use
  Company Number: BE-JNJFOC-20040400021

PATIENT
  Age: 60 Year
  Sex: Female

DRUGS (8)
  1. PROPULSID [Suspect]
     Indication: DIABETIC GASTROPARESIS
     Dosage: 10 MG, 4 IN 1 DAY, ORAL
     Route: 048
     Dates: start: 20030507, end: 20040331
  2. INSULIN [Concomitant]
  3. ASPIRIN [Concomitant]
  4. LEVOTHYROXINE SODIUM [Concomitant]
  5. TENORMIN [Concomitant]
  6. VENORUTON (TROXERUTIN) [Concomitant]
  7. BETASERS (BETAHISTINE HYDROCHLORIDE) [Concomitant]
  8. CALCIUM VIT D (CALCIUM WITH VITAMIN D) [Concomitant]

REACTIONS (1)
  - VARICOSE ULCERATION [None]
